FAERS Safety Report 20504147 (Version 4)
Quarter: 2022Q4

REPORT INFORMATION
  Report Type: Report from Study
  Country: JP (occurrence: JP)
  Receive Date: 20220222
  Receipt Date: 20221215
  Transmission Date: 20230112
  Serious: Yes (Death, Other)
  Sender: FDA-Public Use
  Company Number: JP-JNJFOC-20220240398

PATIENT

DRUGS (1)
  1. SIMPONI [Suspect]
     Active Substance: GOLIMUMAB
     Indication: Product used for unknown indication
     Dosage: DOSE UNKNOWN
     Route: 058

REACTIONS (17)
  - Death [Fatal]
  - Pneumonia [Unknown]
  - Tuberculous pleurisy [Unknown]
  - Lung abscess [Unknown]
  - Breast cancer [Unknown]
  - Lymphoma [Unknown]
  - Oropharyngeal cancer [Unknown]
  - Nasal cavity cancer [Unknown]
  - Cardiac failure [Unknown]
  - Interstitial lung disease [Unknown]
  - Neoplasm malignant [Unknown]
  - Cytopenia [Unknown]
  - Rash [Unknown]
  - Liver disorder [Unknown]
  - Infection [Unknown]
  - Adverse event [Unknown]
  - Drug ineffective [Unknown]
